FAERS Safety Report 5209007-8 (Version None)
Quarter: 2007Q1

REPORT INFORMATION
  Report Type: 
  Country: None (occurrence: None)
  Receive Date: 20070111
  Receipt Date: 20070111
  Transmission Date: 20070707
  Serious: Yes (Other)
  Sender: FDA-Public Use
  Company Number: None

PATIENT
  Age: 53 Year
  Sex: Female
  Weight: 53.0709 kg

DRUGS (2)
  1. AMITRIPTYLINE HCL [Suspect]
     Indication: VAGINAL BURNING SENSATION
     Dosage: 0.5 ML THREE TIMES A DAY VAG
     Route: 067
     Dates: start: 20060109, end: 20060109
  2. AMITRIPTYLINE HCL [Suspect]
     Indication: VULVOVAGINAL DRYNESS
     Dosage: 0.5 ML THREE TIMES A DAY VAG
     Route: 067
     Dates: start: 20060109, end: 20060109

REACTIONS (5)
  - ANGER [None]
  - CONDITION AGGRAVATED [None]
  - IRRITABILITY [None]
  - SOMNOLENCE [None]
  - VAGINAL BURNING SENSATION [None]
